FAERS Safety Report 4424999-2 (Version None)
Quarter: 2004Q3

REPORT INFORMATION
  Report Type: 
  Country: None (occurrence: None)
  Receive Date: 20040811
  Receipt Date: 20040811
  Transmission Date: 20050211
  Serious: Yes (Life-Threatening, Hospitalization)
  Sender: FDA-Public Use
  Company Number: None

PATIENT
  Age: 40 Year
  Sex: Male
  Weight: 205.5 kg

DRUGS (5)
  1. ERBITUX 100 MG IMCLONE/BMS [Suspect]
     Indication: COLORECTAL CANCER METASTATIC
     Dosage: 500 MG WEEKLY IV
     Route: 042
     Dates: start: 20040810, end: 20040810
  2. DARBEPOETIN [Concomitant]
  3. DOLASTRONE [Concomitant]
  4. DEXAMETHASONE [Concomitant]
  5. DIPHENHYDRAMINE HCL [Concomitant]

REACTIONS (4)
  - ERYTHEMA [None]
  - HYPERSENSITIVITY [None]
  - PARAESTHESIA [None]
  - RESPIRATORY DISORDER [None]
